FAERS Safety Report 8098080-8 (Version None)
Quarter: 2012Q1

REPORT INFORMATION
  Report Type: 
  Country: None (occurrence: None)
  Receive Date: 20120128
  Receipt Date: 20110808
  Transmission Date: 20120608
  Serious: Yes (Hospitalization)
  Sender: FDA-Public Use
  Company Number: US-ABBOTT-11P-163-0844769-00

PATIENT
  Sex: Male
  Weight: 115.77 kg

DRUGS (6)
  1. HUMIRA [Suspect]
     Indication: PSORIATIC ARTHROPATHY
     Dates: start: 20070101, end: 20110501
  2. HUMIRA [Suspect]
     Dates: start: 20110807
  3. UNNAMED BLOOD PRESSURE MEDICATION [Concomitant]
     Indication: HYPERTENSION
  4. CYMBALTA [Concomitant]
     Indication: DEPRESSION
  5. TAMSULOSIN HCL [Concomitant]
     Indication: BENIGN PROSTATIC HYPERPLASIA
  6. NEXIUM [Concomitant]
     Indication: GASTROOESOPHAGEAL REFLUX DISEASE

REACTIONS (11)
  - ARTHRALGIA [None]
  - LOWER RESPIRATORY TRACT INFECTION [None]
  - FEELING HOT [None]
  - SCAR [None]
  - WOUND [None]
  - WOUND INFECTION [None]
  - PSORIATIC ARTHROPATHY [None]
  - OEDEMA PERIPHERAL [None]
  - COUGH [None]
  - LIMB INJURY [None]
  - JOINT SWELLING [None]
